FAERS Safety Report 13129822 (Version 1)
Quarter: 2017Q1

REPORT INFORMATION
  Report Type: Spontaneous
  Country: GB (occurrence: GB)
  Receive Date: 20170119
  Receipt Date: 20170119
  Transmission Date: 20170428
  Serious: Yes (Hospitalization, Other)
  Sender: FDA-Public Use
  Company Number: GB-AUROBINDO-AUR-APL-2017-00281

PATIENT
  Age: 75 Year
  Sex: Female

DRUGS (6)
  1. BISOPROLOL [Concomitant]
     Active Substance: BISOPROLOL
     Indication: PRODUCT USED FOR UNKNOWN INDICATION
     Dosage: 2.5 MG, ONCE A DAY
     Route: 065
  2. FUROSEMIDE. [Concomitant]
     Active Substance: FUROSEMIDE
     Indication: PRODUCT USED FOR UNKNOWN INDICATION
     Dosage: 20 MG, ONCE A DAY, IN MORNING
     Route: 065
  3. AMOXICILLIN 500MG [Suspect]
     Active Substance: AMOXICILLIN
     Indication: PRODUCT USED FOR UNKNOWN INDICATION
     Dosage: 500 MG, 3 TIMES A DAY
     Route: 065
  4. CLARITHROMYCIN 500MG [Interacting]
     Active Substance: CLARITHROMYCIN
     Indication: PRODUCT USED FOR UNKNOWN INDICATION
     Dosage: 500 MG, TWO TIMES A DAY
     Route: 065
  5. CANDESARTAN CILEXETIL. [Concomitant]
     Active Substance: CANDESARTAN CILEXETIL
     Indication: PRODUCT USED FOR UNKNOWN INDICATION
     Dosage: 16 MG, ONCE A DAY, IN MORNING
     Route: 065
  6. BRAGGS MEDICINAL CHARCOAL [Interacting]
     Active Substance: ACTIVATED CHARCOAL
     Indication: DYSPEPSIA
     Dosage: 1 DF, TWO TIMES A DAY
     Route: 048
     Dates: start: 20161124, end: 20161224

REACTIONS (5)
  - Cardiac failure [Recovering/Resolving]
  - Inhibitory drug interaction [Recovering/Resolving]
  - Condition aggravated [Recovering/Resolving]
  - Drug ineffective [Recovering/Resolving]
  - Atrial fibrillation [Recovering/Resolving]

NARRATIVE: CASE EVENT DATE: 20161217
